FAERS Safety Report 8624451-4 (Version None)
Quarter: 2012Q3

REPORT INFORMATION
  Report Type: 
  Country: None (occurrence: None)
  Receive Date: 20120827
  Receipt Date: 20120822
  Transmission Date: 20120928
  Serious: Yes (Other)
  Sender: FDA-Public Use
  Company Number: US-PFIZER INC-2012206980

PATIENT
  Sex: Female

DRUGS (2)
  1. LYRICA [Suspect]
     Indication: HERPES ZOSTER
     Dosage: 100 MG, 1X/DAY
     Dates: start: 20120101
  2. LYRICA [Suspect]
     Dosage: UNK

REACTIONS (3)
  - PARAESTHESIA [None]
  - RENAL PAIN [None]
  - OEDEMA PERIPHERAL [None]
